FAERS Safety Report 4330129-8 (Version None)
Quarter: 2004Q1

REPORT INFORMATION
  Report Type: 
  Country: None (occurrence: None)
  Receive Date: 20040329
  Receipt Date: 20040128
  Transmission Date: 20041129
  Serious: No
  Sender: FDA-Public Use
  Company Number: 04P-163-0249018-00

PATIENT
  Age: 71 Year
  Sex: Female

DRUGS (6)
  1. HUMIRA [Suspect]
     Indication: RHEUMATOID ARTHRITIS
     Dosage: SUBCUTANEOUS
     Route: 058
     Dates: start: 20030601
  2. OCTOCAINE WITH EPINEPHRINE [Suspect]
     Indication: TOOTH DISORDER
     Dates: start: 20040128, end: 20040128
  3. METHOTREXATE SDIUM [Concomitant]
  4. PREDNISONE [Concomitant]
  5. MONTELUKAST SODIUM [Concomitant]
  6. FOLIC ACID [Concomitant]

REACTIONS (4)
  - ASTHENIA [None]
  - BLOOD PRESSURE INCREASED [None]
  - HEART RATE INCREASED [None]
  - TREMOR [None]
